FAERS Safety Report 8216780-3 (Version None)
Quarter: 2012Q1

REPORT INFORMATION
  Report Type: 
  Country: None (occurrence: None)
  Receive Date: 20120316
  Receipt Date: 20120305
  Transmission Date: 20120608
  Serious: Yes (Hospitalization, Congenital Anomaly)
  Sender: FDA-Public Use
  Company Number: ES-FRI-1000024660

PATIENT
  Sex: Male
  Weight: 1.6 kg

DRUGS (6)
  1. ESCITALOPRAM [Suspect]
     Dosage: 5 MG
     Route: 064
     Dates: start: 20101228, end: 20110209
  2. ESCITALOPRAM [Suspect]
     Dosage: 10 MG
     Route: 064
     Dates: start: 20100630, end: 20100918
  3. LORMETAZEPAM [Suspect]
     Dosage: 1 MG
     Route: 064
     Dates: start: 20100729, end: 20100918
  4. ESCITALOPRAM [Suspect]
     Dosage: 10 MG
     Route: 064
     Dates: start: 20101013, end: 20101228
  5. LEXATIN [Suspect]
     Dosage: 3 MG
     Route: 064
     Dates: start: 20101013, end: 20101124
  6. LEXATIN [Suspect]
     Dosage: 1.5 MG
     Route: 064
     Dates: start: 20101124, end: 20110209

REACTIONS (5)
  - ATRIAL SEPTAL DEFECT [None]
  - FOETAL EXPOSURE DURING PREGNANCY [None]
  - HYPOPARATHYROIDISM [None]
  - HYPOCALCAEMIA [None]
  - ANAEMIA NEONATAL [None]
